FAERS Safety Report 7004752-6 (Version None)
Quarter: 2010Q3

REPORT INFORMATION
  Report Type: 
  Country: None (occurrence: None)
  Receive Date: 20100921
  Receipt Date: 20100910
  Transmission Date: 20110219
  Serious: No
  Sender: FDA-Public Use
  Company Number: US-JNJFOC-20100904376

PATIENT
  Age: 90 Year
  Sex: Female
  Weight: 68.04 kg

DRUGS (8)
  1. FENTANYL CITRATE [Suspect]
     Indication: PAIN
     Route: 062
  2. NEXIUM [Concomitant]
     Route: 048
  3. SYNTHROID [Concomitant]
     Route: 048
  4. LISINOPRIL [Concomitant]
     Route: 048
  5. WARFARIN [Concomitant]
     Route: 048
  6. CRESTOR [Concomitant]
     Route: 048
  7. ZANTAC [Concomitant]
     Route: 048
  8. ASPIRIN [Concomitant]
     Route: 048

REACTIONS (3)
  - ABNORMAL BEHAVIOUR [None]
  - DIZZINESS [None]
  - TREATMENT NONCOMPLIANCE [None]
